FAERS Safety Report 15721495 (Version 1)
Quarter: 2018Q4

REPORT INFORMATION
  Report Type: Spontaneous
  Country: CN (occurrence: CN)
  Receive Date: 20181214
  Receipt Date: 20181214
  Transmission Date: 20190205
  Serious: Yes (Death, Hospitalization, Other)
  Sender: FDA-Public Use
  Company Number: CN-ROCHE-2225970

PATIENT
  Age: 28 Year
  Sex: Female

DRUGS (4)
  1. OXYTOCIN. [Concomitant]
     Active Substance: OXYTOCIN
     Route: 030
  2. OSELTAMIVIR [Suspect]
     Active Substance: OSELTAMIVIR
     Indication: INFLUENZA
     Route: 065
  3. PERAMIVIR [Concomitant]
     Active Substance: PERAMIVIR
     Route: 065
  4. MISOPROSTOL. [Concomitant]
     Active Substance: MISOPROSTOL

REACTIONS (9)
  - Cardiac failure acute [Recovering/Resolving]
  - Acute respiratory distress syndrome [Fatal]
  - Multiple organ dysfunction syndrome [Fatal]
  - Acute kidney injury [Recovering/Resolving]
  - Foetal death [Unknown]
  - Pneumonia influenzal [Unknown]
  - Septic shock [Unknown]
  - Maternal exposure during pregnancy [Unknown]
  - Pulmonary hypertension [Recovering/Resolving]
